FAERS Safety Report 17064370 (Version 1)
Quarter: 2019Q4

REPORT INFORMATION
  Report Type: Report from Study
  Country: US (occurrence: US)
  Receive Date: 20191122
  Receipt Date: 20191122
  Transmission Date: 20200122
  Serious: No
  Sender: FDA-Public Use
  Company Number: NVSC2019US043343

PATIENT
  Sex: Female

DRUGS (1)
  1. GILENYA [Suspect]
     Active Substance: FINGOLIMOD HYDROCHLORIDE
     Indication: RHEUMATOID ARTHRITIS
     Dosage: 0.5 MG, QD
     Route: 048
     Dates: start: 20190424

REACTIONS (4)
  - Muscular weakness [Unknown]
  - Paraesthesia [Unknown]
  - Myalgia [Unknown]
  - Product use in unapproved indication [Unknown]
